FAERS Safety Report 5853988-6 (Version None)
Quarter: 2008Q3

REPORT INFORMATION
  Report Type: 
  Country: None (occurrence: None)
  Receive Date: 20080822
  Receipt Date: 20080812
  Transmission Date: 20090109
  Serious: Yes (Hospitalization, Other)
  Sender: FDA-Public Use
  Company Number: GB-AMGEN-UK301588

PATIENT
  Sex: Male

DRUGS (5)
  1. NEULASTA [Suspect]
     Indication: CHEMOTHERAPY
     Dates: start: 20080425
  2. VINCRISTINE [Concomitant]
     Route: 042
     Dates: start: 20080421, end: 20080421
  3. DOXORUBICIN HYDROCHLORIDE [Concomitant]
     Route: 042
     Dates: start: 20080421, end: 20080423
  4. ETOPOSIDE [Concomitant]
     Route: 042
     Dates: start: 20080421, end: 20080423
  5. IFOSFAMIDE [Concomitant]
     Route: 042
     Dates: start: 20080421, end: 20080423

REACTIONS (2)
  - DRUG INEFFECTIVE [None]
  - FEBRILE NEUTROPENIA [None]
